FAERS Safety Report 18983684 (Version 1)
Quarter: 2021Q1

REPORT INFORMATION
  Report Type: Spontaneous
  Country: US (occurrence: US)
  Receive Date: 20210308
  Receipt Date: 20210308
  Transmission Date: 20210420
  Serious: No
  Sender: FDA-Public Use
  Company Number: US-GALDERMA-US2020042792

PATIENT
  Age: 23 Year
  Sex: Female

DRUGS (6)
  1. PROACTIV DEEP CLEANSING WASH [Concomitant]
     Active Substance: SALICYLIC ACID
     Indication: SKIN HYPERPIGMENTATION
     Route: 061
     Dates: start: 202005, end: 2020
  2. PROACTIV REDNESS RELIEF SERUM [Concomitant]
     Indication: SKIN HYPERPIGMENTATION
     Route: 061
     Dates: start: 202005, end: 2020
  3. PROACTIV MD DEEP CLEANSING FACE WASH [Concomitant]
     Active Substance: COSMETICS
     Indication: SKIN HYPERPIGMENTATION
     Route: 061
     Dates: start: 202005, end: 2020
  4. PROACTIV MD ADAPALENE ACNE TREATMENT [Suspect]
     Active Substance: ADAPALENE
     Indication: SKIN HYPERPIGMENTATION
     Dosage: 0.1%
     Route: 061
     Dates: start: 202005, end: 2020
  5. PROACTIV MOISTURE REPAIR [Concomitant]
     Active Substance: COSMETICS
     Indication: SKIN HYPERPIGMENTATION
     Route: 061
     Dates: start: 202005, end: 2020
  6. PROACTIV SKIN PURIFYING MASK [Concomitant]
     Active Substance: SULFUR
     Indication: SKIN HYPERPIGMENTATION
     Route: 061
     Dates: start: 202005, end: 2020

REACTIONS (4)
  - Skin burning sensation [Recovering/Resolving]
  - Product use in unapproved indication [Recovered/Resolved]
  - Inappropriate schedule of product administration [Recovered/Resolved]
  - Overdose [Recovered/Resolved]

NARRATIVE: CASE EVENT DATE: 202005
